FAERS Safety Report 24275820 (Version 1)
Quarter: 2024Q3

REPORT INFORMATION
  Report Type: Spontaneous
  Country: JP (occurrence: JP)
  Receive Date: 20240903
  Receipt Date: 20240903
  Transmission Date: 20241016
  Serious: Yes (Death, Other)
  Sender: ADVANZ PHARMA
  Company Number: JP-ADVANZ PHARMA-202408007127

PATIENT

DRUGS (4)
  1. ZONISAMIDE [Suspect]
     Active Substance: ZONISAMIDE
     Indication: Parkinson^s disease
     Dosage: 50 MG, QD (TRERIEF ORODISPERSIBLE TABLET) (STOPPED APPROXIMATELY 21 MONTHS AGO DUE TO OVERLAP WITH E
     Route: 048
  2. ZONISAMIDE [Suspect]
     Active Substance: ZONISAMIDE
     Indication: Tremor
  3. LEVODOPA [Suspect]
     Active Substance: LEVODOPA
     Indication: Product used for unknown indication
     Dosage: 600 MG, QD
     Route: 058
  4. PRAMIPEXOLE DIHYDROCHLORIDE [Suspect]
     Active Substance: PRAMIPEXOLE DIHYDROCHLORIDE
     Indication: Product used for unknown indication
     Dosage: 1.5 MG, QD
     Route: 048

REACTIONS (1)
  - Parkinson^s disease [Fatal]
